FAERS Safety Report 14080637 (Version 1)
Quarter: 2017Q4

REPORT INFORMATION
  Report Type: Report from Study
  Country: JP (occurrence: JP)
  Receive Date: 20171012
  Receipt Date: 20171012
  Transmission Date: 20180321
  Serious: Yes (Hospitalization, Other)
  Sender: FDA-Public Use
  Company Number: JP-BRISTOL-MYERS SQUIBB COMPANY-15237464

PATIENT
  Age: 36 Year
  Sex: Male

DRUGS (9)
  1. TRUVADA [Concomitant]
     Active Substance: EMTRICITABINE\TENOFOVIR DISOPROXIL FUMARATE
     Indication: HIV INFECTION
     Dosage: FROM 19MAY06 TO 28MAY06; 15JUN06 TO 04FEB08
     Route: 048
     Dates: start: 20060615, end: 20080204
  2. ATAZANAVIR SULFATE. [Suspect]
     Active Substance: ATAZANAVIR SULFATE
     Indication: HIV INFECTION
     Dosage: 300 MG, QD
     Route: 048
     Dates: start: 20060615, end: 20080204
  3. BAKTAR [Concomitant]
     Active Substance: SULFAMETHOXAZOLE\TRIMETHOPRIM
     Indication: ANTIFUNGAL PROPHYLAXIS
     Dosage: 1 TAB
     Route: 048
     Dates: start: 20070401, end: 20090818
  4. PREDNISONE. [Concomitant]
     Active Substance: PREDNISONE
     Indication: EOSINOPHILIA
     Dosage: 23JUL08-13AUG08 10MGX2/DAY;14AUG08-27AUG08 15MG/DAY  28AUG08:18AUG09 5MGX2/DAY
     Route: 048
     Dates: start: 20080723, end: 20090818
  5. ZITHROMAC [Concomitant]
     Active Substance: AZITHROMYCIN DIHYDRATE
     Indication: OPPORTUNISTIC INFECTION PROPHYLAXIS
     Dosage: 1200 MG, QWK
     Route: 048
     Dates: start: 20061211, end: 20090818
  6. EFAVIRENZ. [Concomitant]
     Active Substance: EFAVIRENZ
     Indication: HIV INFECTION
     Dosage: 19-MAY-2006 TO 26-MAY-2006 AND 06-JUN-2006 TO 12-JUN-2006.
     Route: 048
     Dates: start: 20060519, end: 20060612
  7. MUCOSTA [Concomitant]
     Active Substance: REBAMIPIDE
     Indication: ABDOMINAL PAIN
     Dosage: 1DF=1 TAB; 1APR07:03FEB2008  24JUL08-31MAR09  2 TABS TWICE DAILY FROM 01APR09-18AUG2009.
     Route: 048
     Dates: start: 20070401, end: 20090818
  8. BLOPRESS [Concomitant]
     Active Substance: CANDESARTAN CILEXETIL
     Indication: HYPERTENSION
     Dosage: TAB
     Route: 048
     Dates: start: 20081029, end: 20090818
  9. NORVIR [Concomitant]
     Active Substance: RITONAVIR
     Indication: HIV INFECTION
     Dosage: CAPS
     Route: 048
     Dates: start: 20060615, end: 20080204

REACTIONS (2)
  - Depression [Not Recovered/Not Resolved]
  - Suicide attempt [Unknown]

NARRATIVE: CASE EVENT DATE: 200802
